FAERS Safety Report 26209752 (Version 1)
Quarter: 2025Q4

REPORT INFORMATION
  Report Type: Spontaneous
  Country: EU (occurrence: EU)
  Receive Date: 20251229
  Receipt Date: 20251229
  Transmission Date: 20260118
  Serious: Yes (Hospitalization, Other)
  Sender: PFIZER
  Company Number: None

PATIENT
  Age: 77 Year
  Sex: Male
  Weight: 60.9 kg

DRUGS (2)
  1. RITUXIMAB [Suspect]
     Active Substance: RITUXIMAB
     Indication: Anti-neutrophil cytoplasmic antibody positive vasculitis
     Dosage: 500 MG, CYCLIC
     Route: 042
     Dates: start: 20240530, end: 20250619
  2. CALCIUM CARBONATE\CHOLECALCIFEROL [Suspect]
     Active Substance: CALCIUM CARBONATE\CHOLECALCIFEROL
     Indication: Vitamin supplementation
     Dosage: 1 DF, 1X/DAY
     Route: 048
     Dates: end: 20250820

REACTIONS (2)
  - Pancreatitis acute [Recovered/Resolved]
  - Off label use [Unknown]

NARRATIVE: CASE EVENT DATE: 20240530
